FAERS Safety Report 9638674 (Version 4)
Quarter: 2014Q1

REPORT INFORMATION
  Report Type: Spontaneous
  Country: US (occurrence: US)
  Receive Date: 20131022
  Receipt Date: 20140123
  Transmission Date: 20141002
  Serious: No
  Sender: FDA-Public Use
  Company Number: US-PFIZER INC-2013299793

PATIENT
  Sex: Male

DRUGS (1)
  1. CELEBREX [Suspect]
     Indication: OSTEOARTHRITIS
     Dosage: UNK, 2X/DAY
     Dates: end: 2013

REACTIONS (3)
  - Inappropriate schedule of drug administration [Unknown]
  - Renal disorder [Unknown]
  - Pain [Unknown]
